FAERS Safety Report 21948621 (Version 2)
Quarter: 2023Q1

REPORT INFORMATION
  Report Type: Spontaneous
  Country: GB (occurrence: GB)
  Receive Date: 20230203
  Receipt Date: 20230210
  Transmission Date: 20230417
  Serious: Yes (Other)
  Sender: FDA-Public Use
  Company Number: None

PATIENT
  Age: 89 Year
  Sex: Female

DRUGS (14)
  1. CIPROFLOXACIN [Suspect]
     Active Substance: CIPROFLOXACIN
     Indication: Scrotal cellulitis
     Route: 065
     Dates: start: 20220617, end: 20220623
  2. CIPROFLOXACIN [Suspect]
     Active Substance: CIPROFLOXACIN
     Indication: Cellulitis of male external genital organ
  3. DAPAGLIFLOZIN [Concomitant]
     Active Substance: DAPAGLIFLOZIN
     Indication: Product used for unknown indication
     Route: 065
  4. DOXAZOSIN [Concomitant]
     Active Substance: DOXAZOSIN MESYLATE
     Indication: Product used for unknown indication
     Route: 065
  5. FELODIPINE [Concomitant]
     Active Substance: FELODIPINE
     Indication: Product used for unknown indication
     Route: 065
  6. GABAPENTIN [Concomitant]
     Active Substance: GABAPENTIN
     Indication: Product used for unknown indication
     Dosage: ONE IN THE MORNING AND MIDDAY AS NEEDED AND TWO AT NIGHT
     Route: 065
  7. LINAGLIPTIN [Concomitant]
     Active Substance: LINAGLIPTIN
     Indication: Product used for unknown indication
     Route: 065
  8. OMEPRAZOLE [Concomitant]
     Active Substance: OMEPRAZOLE
     Indication: Product used for unknown indication
     Route: 065
  9. OXYCODONE [Concomitant]
     Active Substance: OXYCODONE
     Indication: Product used for unknown indication
     Route: 065
     Dates: start: 20220617, end: 20220630
  10. SIMVASTATIN [Concomitant]
     Active Substance: SIMVASTATIN
     Indication: Product used for unknown indication
     Route: 065
  11. TIGECYCLINE [Concomitant]
     Active Substance: TIGECYCLINE
     Indication: Product used for unknown indication
     Dosage: 100 MG IMMEDIATELY
     Route: 065
     Dates: start: 20220622
  12. DERMOL [Concomitant]
     Active Substance: BENZALKONIUM CHLORIDE\CHLORHEXIDINE HYDROCHLORIDE\ISOPROPYL MYRISTATE\PARAFFIN
     Indication: Product used for unknown indication
     Dosage: UNKNOWN; APPLY TO THE SKIN OR USE AS A SOAP SUBSTITUTE
     Route: 065
  13. COCODAMOL [Concomitant]
     Active Substance: ACETAMINOPHEN\CODEINE PHOSPHATE
     Indication: Product used for unknown indication
     Dosage: 8MG/500MG (ONE OR TWO, FOUR TIMES A DAY WHEN REQUIRED - TWO EVERY MORNING AND TWO AT NIGHT)
     Route: 065
  14. DICLOFENAC DIETHYLAMINE [Concomitant]
     Active Substance: DICLOFENAC DIETHYLAMINE
     Indication: Product used for unknown indication
     Dosage: APPLY THREE OR FOUR TIMES A DAY AS NEEDED
     Route: 065

REACTIONS (5)
  - Scrotal oedema [Unknown]
  - Oedema peripheral [Unknown]
  - Rash erythematous [Unknown]
  - Pyrexia [Unknown]
  - Penile oedema [Unknown]

NARRATIVE: CASE EVENT DATE: 20220620
